FAERS Safety Report 5908313-9 (Version None)
Quarter: 2008Q3

REPORT INFORMATION
  Report Type: 
  Country: None (occurrence: None)
  Receive Date: 20080930
  Receipt Date: 20080922
  Transmission Date: 20090109
  Serious: Yes (Hospitalization)
  Sender: FDA-Public Use
  Company Number: 2008BI025066

PATIENT
  Age: 25 Year
  Sex: Female
  Weight: 56.246 kg

DRUGS (2)
  1. TYSABRI [Suspect]
     Indication: MULTIPLE SCLEROSIS
     Dosage: 300 MG;QM;IV : 300 MG;QM;IV
     Route: 042
     Dates: start: 20070201, end: 20070201
  2. TYSABRI [Suspect]
     Indication: MULTIPLE SCLEROSIS
     Dosage: 300 MG;QM;IV : 300 MG;QM;IV
     Route: 042
     Dates: start: 20070501

REACTIONS (4)
  - ABDOMINAL WALL HAEMATOMA [None]
  - DEVICE LEAKAGE [None]
  - MUSCLE SPASMS [None]
  - MUSCULOSKELETAL STIFFNESS [None]
